FAERS Safety Report 20634852 (Version 1)
Quarter: 2022Q1

REPORT INFORMATION
  Report Type: Report from Study
  Country: US (occurrence: US)
  Receive Date: 20220325
  Receipt Date: 20220325
  Transmission Date: 20220423
  Serious: Yes (Other)
  Sender: FDA-Public Use
  Company Number: US-TAKEDA-2019TUS051000

PATIENT
  Age: 68 Year
  Sex: Female
  Weight: 70 kg

DRUGS (2)
  1. BRIGATINIB [Suspect]
     Active Substance: BRIGATINIB
     Indication: Lung neoplasm malignant
     Dosage: 180 MILLIGRAM, QD
     Route: 048
     Dates: start: 20190412
  2. BRIGATINIB [Suspect]
     Active Substance: BRIGATINIB
     Indication: Bronchial neoplasm

REACTIONS (18)
  - Helminthic infection [Unknown]
  - Tooth extraction [Unknown]
  - Toothache [Unknown]
  - Osteoporosis [Unknown]
  - Urticaria [Recovering/Resolving]
  - Insomnia [Recovered/Resolved]
  - Vitamin D decreased [Unknown]
  - Muscle spasms [Unknown]
  - Pain in extremity [Unknown]
  - Arthritis [Unknown]
  - Bone density abnormal [Unknown]
  - Nausea [Unknown]
  - Abdominal pain upper [Unknown]
  - Ulcer [Unknown]
  - Rash macular [Recovering/Resolving]
  - Pruritus [Recovering/Resolving]
  - Fatigue [Recovering/Resolving]
  - Product dose omission issue [Unknown]

NARRATIVE: CASE EVENT DATE: 20190801
